FAERS Safety Report 22379911 (Version 3)
Quarter: 2023Q2

REPORT INFORMATION
  Report Type: Report from Study
  Country: US (occurrence: US)
  Receive Date: 20230529
  Receipt Date: 20230630
  Transmission Date: 20230722
  Serious: No
  Sender: FDA-Public Use
  Company Number: US-002147023-NVSC2023US117930

PATIENT
  Sex: Female

DRUGS (1)
  1. KESIMPTA [Suspect]
     Active Substance: OFATUMUMAB
     Indication: Product used for unknown indication
     Dosage: UNK
     Route: 065

REACTIONS (8)
  - Paraesthesia [Unknown]
  - Muscle twitching [Unknown]
  - Condition aggravated [Unknown]
  - Poor quality sleep [Unknown]
  - Balance disorder [Unknown]
  - Crying [Unknown]
  - Fatigue [Unknown]
  - Headache [Recovered/Resolved]
